FAERS Safety Report 11440503 (Version 1)
Quarter: 2015Q3

REPORT INFORMATION
  Report Type: Spontaneous
  Country: US (occurrence: US)
  Receive Date: 20150901
  Receipt Date: 20150901
  Transmission Date: 20151125
  Serious: No
  Sender: FDA-Public Use
  Company Number: US-ROCHE-1122491

PATIENT
  Sex: Female

DRUGS (3)
  1. RIBAVIRIN. [Suspect]
     Active Substance: RIBAVIRIN
     Indication: CHRONIC HEPATITIS C
     Dosage: DIVIDED DOSES: 600/600
     Route: 065
     Dates: start: 20120720
  2. VICTRELIS [Suspect]
     Active Substance: BOCEPREVIR
     Indication: CHRONIC HEPATITIS C
     Route: 065
     Dates: start: 20120821
  3. PEGASYS [Suspect]
     Active Substance: PEGINTERFERON ALFA-2A
     Indication: CHRONIC HEPATITIS C
     Route: 058
     Dates: start: 20120720

REACTIONS (6)
  - Loss of consciousness [Unknown]
  - Oedema peripheral [Unknown]
  - Heart rate increased [Unknown]
  - Abdominal distension [Unknown]
  - Abdominal pain upper [Unknown]
  - Chest pain [Unknown]
